FAERS Safety Report 9925508 (Version 5)
Quarter: 2014Q1

REPORT INFORMATION
  Report Type: Spontaneous
  Country: US (occurrence: US)
  Receive Date: 20140226
  Receipt Date: 20140321
  Transmission Date: 20141002
  Serious: Yes (Hospitalization)
  Sender: FDA-Public Use
  Company Number: US-JNJFOC-20140212829

PATIENT
  Age: 67 Year
  Sex: Male

DRUGS (2)
  1. XARELTO [Suspect]
     Indication: PULMONARY EMBOLISM
     Route: 048
     Dates: start: 201401, end: 201402
  2. XARELTO [Suspect]
     Indication: DEEP VEIN THROMBOSIS
     Route: 048
     Dates: start: 201401, end: 201402

REACTIONS (6)
  - Device occlusion [Unknown]
  - Sepsis [Unknown]
  - Acute hepatic failure [Unknown]
  - Gastrointestinal haemorrhage [Unknown]
  - Stent placement [Unknown]
  - Poor peripheral circulation [Unknown]
